FAERS Safety Report 7153314-9 (Version None)
Quarter: 2010Q4

REPORT INFORMATION
  Report Type: 
  Country: None (occurrence: None)
  Receive Date: 20101213
  Receipt Date: 20101206
  Transmission Date: 20110411
  Serious: No
  Sender: FDA-Public Use
  Company Number: BR-ROCHE-746542

PATIENT
  Sex: Male
  Weight: 3.3 kg

DRUGS (1)
  1. ROACUTAN [Suspect]
     Indication: ACNE
     Dosage: TWO CAPSULES AFTER LUNCH AND ONE CAPSULE AFTER DINNER
     Route: 064
     Dates: start: 20070821, end: 20071201

REACTIONS (2)
  - NO ADVERSE EVENT [None]
  - NORMAL NEWBORN [None]
